FAERS Safety Report 7791851-4 (Version None)
Quarter: 2011Q4

REPORT INFORMATION
  Report Type: 
  Country: None (occurrence: None)
  Receive Date: 20111003
  Receipt Date: 20110923
  Transmission Date: 20120403
  Serious: Yes (Hospitalization, Other)
  Sender: FDA-Public Use
  Company Number: DE-JNJFOC-20110801170

PATIENT
  Age: 37 Year
  Sex: Female

DRUGS (5)
  1. PALIPERIDONE [Suspect]
     Indication: PSYCHOTIC DISORDER
     Route: 030
     Dates: start: 20110725
  2. SERTRALINE HYDROCHLORIDE [Concomitant]
     Route: 048
     Dates: end: 20110722
  3. SEROQUEL [Concomitant]
     Route: 048
     Dates: end: 20110401
  4. IMPROMEN [Concomitant]
     Route: 048
     Dates: end: 20110719
  5. INVEGA [Concomitant]
     Route: 048
     Dates: end: 20110713

REACTIONS (1)
  - LIVER FUNCTION TEST ABNORMAL [None]
